FAERS Safety Report 4648960-8 (Version None)
Quarter: 2005Q2

REPORT INFORMATION
  Report Type: 
  Country: None (occurrence: None)
  Receive Date: 20050427
  Receipt Date: 20050411
  Transmission Date: 20051028
  Serious: Yes (Death, Hospitalization, Other)
  Sender: FDA-Public Use
  Company Number: US_0504115291

PATIENT
  Age: 57 Year
  Sex: Female

DRUGS (2)
  1. GEMZAR [Suspect]
     Indication: OVARIAN EPITHELIAL CANCER
     Dosage: 2000 MG/M2 OTHER
     Dates: start: 20020201
  2. DOXORUBICIN HCL [Concomitant]

REACTIONS (15)
  - ACUTE RESPIRATORY DISTRESS SYNDROME [None]
  - ACUTE RESPIRATORY FAILURE [None]
  - GENERAL PHYSICAL HEALTH DETERIORATION [None]
  - HAEMOLYTIC ANAEMIA [None]
  - HAEMOLYTIC URAEMIC SYNDROME [None]
  - HYPERTENSION [None]
  - HYPERVOLAEMIA [None]
  - LUNG INJURY [None]
  - PLEURAL EFFUSION [None]
  - PNEUMONIA [None]
  - PROCEDURAL COMPLICATION [None]
  - RASH [None]
  - RENAL FAILURE ACUTE [None]
  - THERAPY NON-RESPONDER [None]
  - THROMBOCYTOPENIA [None]
